FAERS Safety Report 6457651-2 (Version None)
Quarter: 2009Q4

REPORT INFORMATION
  Report Type: 
  Country: None (occurrence: None)
  Receive Date: 20091120
  Receipt Date: 20091106
  Transmission Date: 20100525
  Serious: No
  Sender: FDA-Public Use
  Company Number: 2009SP032884

PATIENT
  Age: 33 Year
  Sex: Male

DRUGS (11)
  1. MIRTAZAPINE [Suspect]
     Indication: DEPRESSION
     Dosage: 15 MG;QD;PO;  30 MG;QD;PO
     Route: 048
     Dates: start: 20090909, end: 20090929
  2. MIRTAZAPINE [Suspect]
     Indication: DEPRESSION
     Dosage: 15 MG;QD;PO;  30 MG;QD;PO
     Route: 048
     Dates: start: 20090930, end: 20091017
  3. CLOTIAZEPAM [Concomitant]
  4. VALPROATE SODIUM [Concomitant]
  5. REBAMIPIDE [Concomitant]
  6. FLUNITRAZEPAM [Concomitant]
  7. SERTRALINE HYDROCHLORIDE [Concomitant]
  8. BROMAZEPAM [Concomitant]
  9. LORAZEPAM [Concomitant]
  10. TRIAZOLAM [Concomitant]
  11. BROTIZOLAM [Concomitant]

REACTIONS (10)
  - AMNESIA [None]
  - DECREASED APPETITE [None]
  - FALL [None]
  - FEELING ABNORMAL [None]
  - HYPOAESTHESIA [None]
  - INSOMNIA [None]
  - MENTAL IMPAIRMENT [None]
  - MUSCULOSKELETAL STIFFNESS [None]
  - PARAESTHESIA [None]
  - SOMNOLENCE [None]
